FAERS Safety Report 15231393 (Version 1)
Quarter: 2018Q3

REPORT INFORMATION
  Report Type: Spontaneous
  Country: US (occurrence: US)
  Receive Date: 20180708
  Receipt Date: 20180708
  Transmission Date: 20181010
  Serious: No
  Sender: FDA-Public Use
  Company Number: None

PATIENT
  Age: 34 Month
  Sex: Male
  Weight: 16.65 kg

DRUGS (1)
  1. NEUTROGENA WET SKIN KIDS BEACH AND POOL SUNBLOCK SPF 70PLUS HELIOPLEX [Suspect]
     Active Substance: AVOBENZONE\HOMOSALATE\OCTISALATE\OCTOCRYLENE\OXYBENZONE
     Indication: SUNBURN
     Dosage: ?          OTHER STRENGTH:70+;QUANTITY:1 SPRAY(S);?
     Route: 061
     Dates: start: 20180707, end: 20180707

REACTIONS (4)
  - Rhinorrhoea [None]
  - Erythema [None]
  - Eye swelling [None]
  - Eye irritation [None]

NARRATIVE: CASE EVENT DATE: 20180707
